FAERS Safety Report 25134049 (Version 4)
Quarter: 2025Q4

REPORT INFORMATION
  Report Type: Spontaneous
  Country: US (occurrence: US)
  Receive Date: 20250328
  Receipt Date: 20251210
  Transmission Date: 20260118
  Serious: No
  Sender: SANOFI AVENTIS
  Company Number: US-SA-2025SA088606

PATIENT
  Age: 14 Year
  Sex: Male

DRUGS (5)
  1. ALPROLIX [Suspect]
     Active Substance: EFTRENONACOG ALFA
     Indication: Factor IX deficiency
     Dosage: 4400 U, QW
     Route: 042
     Dates: start: 202210
  2. ALPROLIX [Suspect]
     Active Substance: EFTRENONACOG ALFA
     Indication: Factor IX deficiency
     Dosage: 4400 U, QW
     Route: 042
     Dates: start: 202210
  3. ALPROLIX [Suspect]
     Active Substance: EFTRENONACOG ALFA
     Dosage: 3700 UNITS QW
     Route: 042
     Dates: start: 202210
  4. ALPROLIX [Suspect]
     Active Substance: EFTRENONACOG ALFA
     Dosage: 3700 UNITS QW
     Route: 042
     Dates: start: 202210
  5. SODIUM CHLORIDE [Concomitant]
     Active Substance: SODIUM CHLORIDE
     Dosage: UNK

REACTIONS (5)
  - Limb injury [Unknown]
  - Discomfort [Unknown]
  - Ligament sprain [Unknown]
  - Haemorrhage [Recovered/Resolved]
  - Traumatic haemorrhage [Unknown]

NARRATIVE: CASE EVENT DATE: 20250101
